FAERS Safety Report 4848814-8 (Version None)
Quarter: 2005Q4

REPORT INFORMATION
  Report Type: 
  Country: None (occurrence: None)
  Receive Date: 20051115
  Receipt Date: 20050825
  Transmission Date: 20060501
  Serious: No
  Sender: FDA-Public Use
  Company Number: S05-USA-04193-01

PATIENT
  Age: 76 Year
  Sex: Male
  Weight: 108.8633 kg

DRUGS (10)
  1. NAMENDA [Suspect]
     Indication: DEMENTIA
     Dosage: 10 MG BID PO
     Route: 048
     Dates: start: 20040101, end: 20040101
  2. NAMENDA [Suspect]
     Indication: DEMENTIA
     Route: 065
     Dates: start: 20040101, end: 20040101
  3. NAMENDA [Suspect]
     Indication: DEMENTIA
     Dosage: 5 MG QD PO
     Route: 048
     Dates: start: 20040101, end: 20040101
  4. NAMENDA [Suspect]
     Indication: DEMENTIA
     Dosage: 5 MG BID PO
     Route: 048
     Dates: start: 20040101, end: 20040101
  5. NAMENDA [Suspect]
     Indication: DEMENTIA
     Dosage: 15 MG QD PO
     Route: 048
     Dates: start: 20040101, end: 20040101
  6. CARDIZEM [Concomitant]
  7. FLOVENT [Concomitant]
  8. COMBIVENT [Concomitant]
  9. PLAVIX [Concomitant]
  10. FLOMAX (TAMSULONSIN) [Concomitant]

REACTIONS (2)
  - SEDATION [None]
  - SOMNOLENCE [None]
